FAERS Safety Report 9742662 (Version 2)
Quarter: 2013Q4

REPORT INFORMATION
  Report Type: Spontaneous
  Country: US (occurrence: US)
  Receive Date: 20131210
  Receipt Date: 20131210
  Transmission Date: 20140711
  Serious: No
  Sender: FDA-Public Use
  Company Number: US-GILEAD-2009-0024780

PATIENT
  Age: 71 Year
  Sex: Female
  Weight: 104.33 kg

DRUGS (12)
  1. LETAIRIS [Suspect]
     Indication: PULMONARY ARTERIAL HYPERTENSION
     Dates: start: 20091111, end: 20091124
  2. REVATIO [Concomitant]
  3. CARDURA [Concomitant]
  4. PACERONE [Concomitant]
  5. ANAGRELIDE [Concomitant]
  6. APAPRO [Concomitant]
  7. METOLAZONE [Concomitant]
  8. LASIX [Concomitant]
  9. DIURETIC [Concomitant]
  10. ALLEGRA [Concomitant]
  11. LEVOTHYROXIN [Concomitant]
  12. NEXIUM [Concomitant]

REACTIONS (4)
  - Blood pressure decreased [Unknown]
  - Local swelling [Unknown]
  - Arthralgia [Unknown]
  - Weight increased [Unknown]
